FAERS Safety Report 12898827 (Version 1)
Quarter: 2016Q4

REPORT INFORMATION
  Report Type: Spontaneous
  Country: AR (occurrence: AR)
  Receive Date: 20161101
  Receipt Date: 20161101
  Transmission Date: 20170207
  Serious: Yes (Hospitalization, Other)
  Sender: FDA-Public Use
  Company Number: AR-STRIDES ARCOLAB LIMITED-2016SP016620

PATIENT

DRUGS (4)
  1. DIPIRONE [Suspect]
     Active Substance: METAMIZOLE SODIUM
     Indication: PYREXIA
     Dosage: UNK
  2. IBUPROFEN. [Suspect]
     Active Substance: IBUPROFEN
     Indication: PYREXIA
     Dosage: UNK
     Route: 048
  3. DIPIRONE [Suspect]
     Active Substance: METAMIZOLE SODIUM
     Indication: MALAISE
  4. IBUPROFEN. [Suspect]
     Active Substance: IBUPROFEN
     Indication: MALAISE

REACTIONS (14)
  - Ciliary hyperaemia [Recovered/Resolved]
  - Pupillary block [Recovered/Resolved]
  - Intraocular pressure increased [Recovered/Resolved]
  - Keratic precipitates [Recovered/Resolved]
  - Vision blurred [Recovered/Resolved]
  - Iris adhesions [Recovered/Resolved]
  - Pyrexia [Recovered/Resolved]
  - Chorioretinitis [Recovered/Resolved]
  - Generalised oedema [Recovered/Resolved]
  - Tubulointerstitial nephritis and uveitis syndrome [Recovered/Resolved]
  - Eosinophilia [Recovered/Resolved]
  - Retinal pigment epitheliopathy [Recovered/Resolved]
  - Acute kidney injury [Recovered/Resolved]
  - Rash maculo-papular [Recovered/Resolved]
